FAERS Safety Report 12318492 (Version 1)
Quarter: 2016Q2

REPORT INFORMATION
  Report Type: Spontaneous
  Country: US (occurrence: US)
  Receive Date: 20160429
  Receipt Date: 20160429
  Transmission Date: 20160815
  Serious: Yes (Disabling)
  Sender: FDA-Public Use
  Company Number: US-TAKEDA-2016TUS007348

PATIENT
  Age: 75 Year
  Sex: Female

DRUGS (1)
  1. PREVACID [Suspect]
     Active Substance: LANSOPRAZOLE
     Indication: EROSIVE OESOPHAGITIS
     Dosage: UNK, QD
     Route: 065

REACTIONS (26)
  - Disability [Unknown]
  - Paranoia [Unknown]
  - Personality change [Unknown]
  - Aggression [Unknown]
  - Dementia [Recovered/Resolved]
  - Apathy [Unknown]
  - Vaginal infection [Unknown]
  - Muscle spasms [Recovered/Resolved]
  - Tremor [Recovered/Resolved]
  - Chest pain [Unknown]
  - Nightmare [Recovered/Resolved]
  - Abnormal behaviour [Unknown]
  - Insomnia [Recovering/Resolving]
  - Limb discomfort [Unknown]
  - Circulatory collapse [Unknown]
  - Body temperature fluctuation [Unknown]
  - Bruxism [Recovered/Resolved]
  - Hallucination [Unknown]
  - Headache [Unknown]
  - Palpitations [Unknown]
  - Migraine [Recovered/Resolved]
  - Social avoidant behaviour [Unknown]
  - Thought blocking [Recovered/Resolved]
  - Feeling abnormal [Recovering/Resolving]
  - Balance disorder [Recovered/Resolved]
  - Depression [Unknown]
